FAERS Safety Report 18420250 (Version 2)
Quarter: 2020Q4

REPORT INFORMATION
  Report Type: Report from Study
  Country: None (occurrence: CO)
  Receive Date: 20201023
  Receipt Date: 20201113
  Transmission Date: 20210114
  Serious: Yes (Other)
  Sender: FDA-Public Use
  Company Number: CO-ABBVIE-20K-036-3621493-00

PATIENT
  Age: 18 Year
  Sex: Male
  Weight: 60 kg

DRUGS (2)
  1. HUMIRA [Suspect]
     Active Substance: ADALIMUMAB
     Route: 058
     Dates: start: 20201104
  2. HUMIRA [Suspect]
     Active Substance: ADALIMUMAB
     Indication: JUVENILE IDIOPATHIC ARTHRITIS
     Route: 058
     Dates: start: 20181122, end: 20200922

REACTIONS (5)
  - Arthritis [Recovered/Resolved]
  - Arthralgia [Recovered/Resolved]
  - Bursitis [Recovered/Resolved]
  - Erythema [Recovered/Resolved]
  - Bursitis [Recovering/Resolving]

NARRATIVE: CASE EVENT DATE: 20200923
